FAERS Safety Report 8343674-5 (Version None)
Quarter: 2012Q2

REPORT INFORMATION
  Report Type: 
  Country: None (occurrence: None)
  Receive Date: 20120503
  Receipt Date: 20120503
  Transmission Date: 20120825
  Serious: Yes (Hospitalization)
  Sender: FDA-Public Use
  Company Number: None

PATIENT
  Sex: Female
  Weight: 108.3 kg

DRUGS (4)
  1. CYTARABINE [Suspect]
     Dosage: 1030.5 MG
  2. MERCAPTOPURINE [Suspect]
     Dosage: 950 MG
  3. CYCLOPHOSPHAMIDE [Suspect]
     Dosage: 2290 MG
  4. METHOTREXATE [Suspect]
     Dosage: 15 MG

REACTIONS (3)
  - AXILLARY PAIN [None]
  - EYE PAIN [None]
  - THROMBOSIS [None]
